FAERS Safety Report 21931200 (Version 1)
Quarter: 2023Q1

REPORT INFORMATION
  Report Type: Spontaneous
  Country: US (occurrence: None)
  Receive Date: 20230130
  Receipt Date: 20230130
  Transmission Date: 20230418
  Serious: Yes (Hospitalization)
  Sender: FDA-Public Use
  Company Number: None

PATIENT
  Age: 70 Year
  Sex: Male

DRUGS (1)
  1. WARFARIN SODIUM [Suspect]
     Active Substance: WARFARIN SODIUM
     Indication: Atrial fibrillation
     Dosage: 5 MG EVERY DAY PO?
     Route: 048
     Dates: start: 20210727

REACTIONS (5)
  - Haematuria [None]
  - Device dislocation [None]
  - Vascular stent thrombosis [None]
  - Post procedural haemorrhage [None]
  - Transurethral bladder resection [None]
